FAERS Safety Report 14407756 (Version 1)
Quarter: 2018Q1

REPORT INFORMATION
  Report Type: Spontaneous
  Country: NL (occurrence: NL)
  Receive Date: 20180118
  Receipt Date: 20180118
  Transmission Date: 20180509
  Serious: Yes (Hospitalization)
  Sender: FDA-Public Use
  Company Number: NL-PFIZER INC-2018021527

PATIENT

DRUGS (5)
  1. 5-FLUOROURACIL /00098801/ [Suspect]
     Active Substance: FLUOROURACIL
     Indication: COLORECTAL CANCER
     Dosage: 2400 MG/M2, UNK, DATE OF MOST RECENT DOSE PRIOR TO SAE 20/OCT/2016, IN 46 HOURS
     Route: 041
     Dates: start: 20160907
  2. LEUCOVORIN /00566701/ [Suspect]
     Active Substance: LEUCOVORIN
     Indication: COLORECTAL CANCER
     Dosage: 400 MG/M2, UNK, DATE OF MOST RECENT DOSE PRIOR TO SAE 20/OCT/2016, IN 120 MINUTES.
     Route: 042
     Dates: start: 20160907
  3. 5-FLUOROURACIL /00098801/ [Suspect]
     Active Substance: FLUOROURACIL
     Dosage: 400 MG/M2, UNK (DATE OF MOST RECENT DOSE PRIOR TO SAE 20/OCT/2016, WITHIN 4 MINUTES, ALL ON DAY 1)
     Route: 040
     Dates: start: 20160907
  4. AVASTIN [Suspect]
     Active Substance: BEVACIZUMAB
     Indication: COLORECTAL CANCER
     Dosage: 5 MG/KG, UNK, DATE OF MOST RECENT DOSE PRIOR TO SAE 20/OCT/2016, IN 15-30 MINUTES
     Route: 042
     Dates: start: 20160907
  5. OXALIPLATIN. [Suspect]
     Active Substance: OXALIPLATIN
     Indication: COLORECTAL CANCER
     Dosage: 85 MG/M2, UNK, DATE OF MOST RECENT DOSE PRIOR TO SAE 20/OCT/2016
     Route: 042
     Dates: start: 20160907

REACTIONS (1)
  - Chills [Recovered/Resolved]

NARRATIVE: CASE EVENT DATE: 20161101
